FAERS Safety Report 8100337-9 (Version None)
Quarter: 2012Q1

REPORT INFORMATION
  Report Type: 
  Country: None (occurrence: None)
  Receive Date: 20120129
  Receipt Date: 20111123
  Transmission Date: 20120608
  Serious: No
  Sender: FDA-Public Use
  Company Number: US-ABBOTT-11P-163-0877937-00

PATIENT
  Sex: Female

DRUGS (8)
  1. ZOVIA 1/35E-21 [Concomitant]
     Indication: OVARIAN CYST
     Dosage: PACK DAILY
  2. PREDNISONE TAB [Concomitant]
     Indication: PRODUCT USED FOR UNKNOWN INDICATION
     Dosage: DAILY
  3. FOLIC ACID [Concomitant]
     Indication: PRODUCT USED FOR UNKNOWN INDICATION
     Dosage: DAILY
  4. PIROXICAM [Concomitant]
     Indication: PRODUCT USED FOR UNKNOWN INDICATION
  5. RANITIDINE [Concomitant]
     Indication: GASTRIC DISORDER
  6. HUMIRA [Suspect]
     Indication: JUVENILE ARTHRITIS
     Route: 058
     Dates: start: 20111122
  7. CLARITIN [Concomitant]
     Indication: HYPERSENSITIVITY
     Dosage: DAILY OTC
  8. METHOTREXATE [Concomitant]
     Indication: PRODUCT USED FOR UNKNOWN INDICATION
     Dosage: WEEKLY

REACTIONS (5)
  - INJECTION SITE PAIN [None]
  - PYREXIA [None]
  - VOMITING [None]
  - NAUSEA [None]
  - HEADACHE [None]
